FAERS Safety Report 6152640-X (Version None)
Quarter: 2009Q2

REPORT INFORMATION
  Report Type: 
  Country: None (occurrence: None)
  Receive Date: 20090413
  Receipt Date: 20090406
  Transmission Date: 20091009
  Serious: Yes (Other)
  Sender: FDA-Public Use
  Company Number: US-BAYER-200917562NA

PATIENT
  Age: 53 Year
  Sex: Female

DRUGS (23)
  1. SORAFENIB [Suspect]
     Indication: BREAST CANCER METASTATIC
     Route: 048
     Dates: start: 20081017, end: 20081017
  2. SORAFENIB [Suspect]
     Route: 048
     Dates: start: 20081114, end: 20081114
  3. SORAFENIB [Suspect]
     Route: 048
     Dates: start: 20081212, end: 20081212
  4. SORAFENIB [Suspect]
     Route: 048
     Dates: start: 20090109, end: 20090109
  5. SORAFENIB [Suspect]
     Route: 048
     Dates: start: 20090206, end: 20090206
  6. SORAFENIB [Suspect]
     Route: 048
     Dates: start: 20090306, end: 20090306
  7. PACLITAXEL [Suspect]
     Indication: BREAST CANCER METASTATIC
     Dates: start: 20081017, end: 20081017
  8. PACLITAXEL [Suspect]
     Dates: start: 20081024, end: 20081024
  9. PACLITAXEL [Suspect]
     Dates: start: 20081031, end: 20081031
  10. PACLITAXEL [Suspect]
     Dates: start: 20081114, end: 20081114
  11. PACLITAXEL [Suspect]
     Dates: start: 20081121, end: 20081121
  12. PACLITAXEL [Suspect]
     Dates: start: 20081126, end: 20081126
  13. PACLITAXEL [Suspect]
     Dates: start: 20081212, end: 20081212
  14. PACLITAXEL [Suspect]
     Dates: start: 20081219, end: 20081219
  15. PACLITAXEL [Suspect]
     Dates: start: 20090109, end: 20090109
  16. PACLITAXEL [Suspect]
     Dates: start: 20090116, end: 20090116
  17. PACLITAXEL [Suspect]
     Dates: start: 20090123, end: 20090123
  18. PACLITAXEL [Suspect]
     Dates: start: 20090206, end: 20090206
  19. PACLITAXEL [Suspect]
     Dates: start: 20090213, end: 20090213
  20. PACLITAXEL [Suspect]
     Dates: start: 20090220, end: 20090220
  21. PACLITAXEL [Suspect]
     Dates: start: 20090306, end: 20090306
  22. PACLITAXEL [Suspect]
     Dates: start: 20090313, end: 20090313
  23. PACLITAXEL [Suspect]
     Dates: start: 20090320, end: 20090320

REACTIONS (1)
  - PULMONARY EMBOLISM [None]
